FAERS Safety Report 16336772 (Version 3)
Quarter: 2019Q2

REPORT INFORMATION
  Report Type: Spontaneous
  Country: US (occurrence: US)
  Receive Date: 20190521
  Receipt Date: 20190612
  Transmission Date: 20190711
  Serious: Yes (Other)
  Sender: FDA-Public Use
  Company Number: US-AMGEN INC.-USASP2019079288

PATIENT
  Age: 48 Year
  Sex: Female
  Weight: 43.54 kg

DRUGS (2)
  1. BOTOX [Suspect]
     Active Substance: ONABOTULINUMTOXINA
     Indication: MIGRAINE PROPHYLAXIS
     Dosage: 200 UNIT, Q84DAYS
     Route: 065
     Dates: start: 20130427
  2. AIMOVIG [Suspect]
     Active Substance: ERENUMAB-AOOE
     Indication: MIGRAINE PROPHYLAXIS
     Dosage: 140 MILLIGRAM, QMO
     Route: 058
     Dates: start: 20181018, end: 20190509

REACTIONS (4)
  - Lip swelling [Unknown]
  - Oral candidiasis [Unknown]
  - Oral mucosal erythema [Unknown]
  - Skin lesion [Unknown]

NARRATIVE: CASE EVENT DATE: 201903
